FAERS Safety Report 4551407-3 (Version None)
Quarter: 2005Q1

REPORT INFORMATION
  Report Type: 
  Country: None (occurrence: None)
  Receive Date: 20050107
  Receipt Date: 20041223
  Transmission Date: 20050727
  Serious: Yes (Hospitalization, Other)
  Sender: FDA-Public Use
  Company Number: ENTC2004-0248

PATIENT
  Sex: 0

DRUGS (5)
  1. STALEVO 100 [Suspect]
  2. BETASERC [Concomitant]
  3. THROMBO ASS [Concomitant]
  4. DETRUSITOL [Concomitant]
  5. SPIRONO COMP [Concomitant]

REACTIONS (6)
  - AGITATION [None]
  - CONDITION AGGRAVATED [None]
  - CONFUSIONAL STATE [None]
  - DYSKINESIA [None]
  - FALL [None]
  - OVERDOSE [None]
